FAERS Safety Report 12155235 (Version 1)
Quarter: 2016Q1

REPORT INFORMATION
  Report Type: Spontaneous
  Country: FR (occurrence: FR)
  Receive Date: 20160307
  Receipt Date: 20160307
  Transmission Date: 20160526
  Serious: Yes (Hospitalization)
  Sender: FDA-Public Use
  Company Number: FR-SUNOVION-2016SUN000583

PATIENT

DRUGS (5)
  1. ZITHROMAX [Concomitant]
     Active Substance: AZITHROMYCIN DIHYDRATE
     Indication: RESPIRATORY TRACT INFECTION
     Dosage: UNK
     Dates: start: 20160207
  2. KEPPRA [Concomitant]
     Active Substance: LEVETIRACETAM
  3. ZEBINIX [Suspect]
     Active Substance: ESLICARBAZEPINE ACETATE
     Indication: MENINGIOMA
     Dosage: 800 MG, QD
     Route: 048
     Dates: start: 20160115, end: 20160209
  4. OROCAL [Concomitant]
     Active Substance: CALCIUM CARBONATE
  5. LEVOTHYROX [Concomitant]
     Active Substance: LEVOTHYROXINE

REACTIONS (5)
  - Pruritus [Unknown]
  - Product use issue [Unknown]
  - Drug dose titration not performed [Unknown]
  - Rash maculo-papular [Not Recovered/Not Resolved]
  - Rash [Recovered/Resolved]

NARRATIVE: CASE EVENT DATE: 2016
